FAERS Safety Report 7069138-7 (Version None)
Quarter: 2010Q4

REPORT INFORMATION
  Report Type: 
  Country: None (occurrence: None)
  Receive Date: 20101028
  Receipt Date: 20101022
  Transmission Date: 20110411
  Serious: Yes (Hospitalization)
  Sender: FDA-Public Use
  Company Number: A0889010A

PATIENT
  Age: 65 Year
  Sex: Male

DRUGS (1)
  1. AVANDIA [Suspect]
     Dosage: 8MG PER DAY
     Route: 048
     Dates: start: 20030601, end: 20070701

REACTIONS (4)
  - AMNESIA [None]
  - CARDIAC ARREST [None]
  - MUSCLE TWITCHING [None]
  - MYOCARDIAL INFARCTION [None]
